FAERS Safety Report 10189013 (Version 2)
Quarter: 2014Q2

REPORT INFORMATION
  Report Type: Spontaneous
  Country: CH (occurrence: CH)
  Receive Date: 20140522
  Receipt Date: 20140522
  Transmission Date: 20141212
  Serious: Yes (Death, Congenital Anomaly, Other)
  Sender: FDA-Public Use
  Company Number: CH-BAYER-2014-059137

PATIENT
  Age: 47 Year
  Sex: Female
  Weight: 53 kg

DRUGS (4)
  1. STIVARGA [Suspect]
     Indication: COLON CANCER
     Dosage: DAILY DOSE 120 MG
     Route: 048
     Dates: start: 20131206, end: 20140207
  2. DEXAMETHASON [Concomitant]
  3. TOREM [Concomitant]
  4. ALDACTONE [SPIRONOLACTONE] [Concomitant]

REACTIONS (3)
  - Death [Fatal]
  - Hepatotoxicity [None]
  - Colon cancer metastatic [None]
